FAERS Safety Report 24354307 (Version 5)
Quarter: 2024Q4

REPORT INFORMATION
  Report Type: Spontaneous
  Country: US (occurrence: US)
  Receive Date: 20240923
  Receipt Date: 20241106
  Transmission Date: 20250115
  Serious: No
  Sender: ROCHE
  Company Number: US-ROCHE-10000083828

PATIENT
  Age: 25 Year
  Sex: Female

DRUGS (1)
  1. ACTEMRA ACTPEN [Suspect]
     Active Substance: TOCILIZUMAB
     Indication: Rheumatoid arthritis
     Route: 058

REACTIONS (6)
  - Swelling [Unknown]
  - Pruritus [Unknown]
  - Injection site erythema [Unknown]
  - Contusion [Unknown]
  - Pain [Unknown]
  - Treatment failure [Unknown]
